FAERS Safety Report 21898095 (Version 2)
Quarter: 2023Q1

REPORT INFORMATION
  Report Type: Spontaneous
  Country: FR (occurrence: FR)
  Receive Date: 20230123
  Receipt Date: 20230206
  Transmission Date: 20230417
  Serious: Yes (Other)
  Sender: FDA-Public Use
  Company Number: FR-MYLANLABS-2023M1006399

PATIENT
  Age: 81 Year
  Sex: Male
  Weight: 183 kg

DRUGS (2)
  1. AMIODARONE [Suspect]
     Active Substance: AMIODARONE
     Indication: Arrhythmia
     Dosage: 1 DOSAGE FORM, QD (ONE INTAKE PER DAY EVERY 3 MONTHS)
     Route: 048
  2. ELIQUIS [Concomitant]
     Active Substance: APIXABAN
     Dosage: UNK
     Route: 065

REACTIONS (2)
  - Arrhythmia [Recovered/Resolved]
  - Fatigue [Recovered/Resolved]
